FAERS Safety Report 8644159 (Version 3)
Quarter: 2013Q1

REPORT INFORMATION
  Report Type: Report from Study
  Country: JP (occurrence: JP)
  Receive Date: 20120629
  Receipt Date: 20130218
  Transmission Date: 20140127
  Serious: Yes (Death, Life-Threatening, Hospitalization)
  Sender: FDA-Public Use
  Company Number: JP-GENZYME-THYM-1003298

PATIENT
  Age: 66 None
  Sex: Male
  Weight: 65 kg

DRUGS (9)
  1. THYMOGLOBULIN [Suspect]
     Indication: ACUTE GRAFT VERSUS HOST DISEASE
     Dosage: 65 MG, QD
     Route: 065
     Dates: start: 20110512, end: 20110512
  2. THYMOGLOBULIN [Suspect]
     Dosage: 65 MG, QD
     Route: 065
     Dates: start: 20110515, end: 20110515
  3. PREDNISOLONE [Concomitant]
     Indication: GRAFT VERSUS HOST DISEASE
     Dosage: UNK
     Route: 065
     Dates: start: 20110509, end: 20110518
  4. TACROLIMUS [Concomitant]
     Indication: GRAFT VERSUS HOST DISEASE
     Dosage: UNK
     Route: 065
     Dates: start: 20110329, end: 20110518
  5. MICAFUNGIN SODIUM [Concomitant]
     Indication: ANTIFUNGAL PROPHYLAXIS
     Dosage: UNK
     Route: 065
     Dates: start: 20110401, end: 20110518
  6. GANCICLOVIR [Concomitant]
     Indication: HUMAN HERPESVIRUS 6 INFECTION
     Dosage: UNK
     Route: 065
     Dates: start: 20110505, end: 20110518
  7. OMEPRAZOLE [Concomitant]
     Indication: PROPHYLAXIS
     Dosage: UNK
     Route: 065
     Dates: start: 20110510, end: 20110518
  8. INSULIN HUMAN [Concomitant]
     Indication: PRODUCT USED FOR UNKNOWN INDICATION
     Dosage: UNK
     Route: 065
     Dates: start: 20110514, end: 20110516
  9. CORTICOSTEROID NOS [Concomitant]
     Indication: ACUTE GRAFT VERSUS HOST DISEASE
     Dosage: UNK
     Route: 065
     Dates: start: 20110505, end: 20110518

REACTIONS (4)
  - Pneumonia [Fatal]
  - Graft versus host disease [Fatal]
  - Arrhythmia [Unknown]
  - Dehydration [Unknown]
